FAERS Safety Report 11793016 (Version 1)
Quarter: 2015Q4

REPORT INFORMATION
  Report Type: Spontaneous
  Country: US (occurrence: US)
  Receive Date: 20151202
  Receipt Date: 20151202
  Transmission Date: 20160305
  Serious: Yes (Other)
  Sender: FDA-Public Use
  Company Number: US-MYLANLABS-2015M1041942

PATIENT

DRUGS (1)
  1. TOPIRAMATE. [Suspect]
     Active Substance: TOPIRAMATE
     Indication: MIGRAINE
     Route: 065

REACTIONS (9)
  - Anorexia nervosa [Unknown]
  - Condition aggravated [Unknown]
  - Amenorrhoea [Unknown]
  - Constipation [Unknown]
  - Dizziness [Unknown]
  - Fatigue [Unknown]
  - Orthostatic intolerance [Unknown]
  - Abdominal pain [Unknown]
  - Temperature intolerance [Unknown]
